FAERS Safety Report 7270397-6 (Version None)
Quarter: 2011Q1

REPORT INFORMATION
  Report Type: 
  Country: None (occurrence: None)
  Receive Date: 20110202
  Receipt Date: 20110124
  Transmission Date: 20110831
  Serious: Yes (Death)
  Sender: FDA-Public Use
  Company Number: US-ELI_LILLY_AND_COMPANY-US201101002073

PATIENT
  Sex: Female
  Weight: 46.259 kg

DRUGS (1)
  1. GEMZAR [Suspect]
     Indication: OVARIAN CANCER
     Dosage: 950 MG, UNK
     Route: 042
     Dates: start: 20100127, end: 20100310

REACTIONS (1)
  - NEOPLASM MALIGNANT [None]
